FAERS Safety Report 9110672 (Version 1)
Quarter: 2013Q1

REPORT INFORMATION
  Report Type: Spontaneous
  Country: US (occurrence: US)
  Receive Date: 20130219
  Receipt Date: 20130219
  Transmission Date: 20140127
  Serious: Yes (Other)
  Sender: FDA-Public Use
  Company Number: US-BRISTOL-MYERS SQUIBB COMPANY-17075227

PATIENT
  Age: 55 Year
  Sex: Female
  Weight: 49.89 kg

DRUGS (4)
  1. ORENCIA [Suspect]
     Indication: RHEUMATOID ARTHRITIS
     Dosage: LAST INF:11OCT12, PREVIOUSLY TOOK 750 MG
     Route: 042
  2. AZATHIOPRINE [Suspect]
     Indication: PAIN
  3. GILENYA [Suspect]
     Indication: MULTIPLE SCLEROSIS
  4. PREDNISONE [Concomitant]

REACTIONS (3)
  - Multiple sclerosis relapse [Unknown]
  - Drug ineffective [Unknown]
  - White blood cell count decreased [Unknown]
